FAERS Safety Report 17930182 (Version 1)
Quarter: 2020Q2

REPORT INFORMATION
  Report Type: Report from Study
  Country: None (occurrence: IT)
  Receive Date: 20200623
  Receipt Date: 20200623
  Transmission Date: 20200714
  Serious: Yes (Death)
  Sender: FDA-Public Use
  Company Number: IT-ABBVIE-20K-083-3454387-00

PATIENT
  Sex: Male

DRUGS (1)
  1. DUODOPA [Suspect]
     Active Substance: CARBIDOPA\LEVODOPA
     Indication: PARKINSON^S DISEASE
     Dosage: MD: 8,5+3??CR: 3,5 (14H),??ED: 2,5
     Route: 050
     Dates: start: 20160309, end: 20200620

REACTIONS (2)
  - Disease complication [Fatal]
  - Pneumonia [Fatal]
